FAERS Safety Report 8023962-2 (Version None)
Quarter: 2012Q1

REPORT INFORMATION
  Report Type: 
  Country: None (occurrence: None)
  Receive Date: 20120105
  Receipt Date: 20120103
  Transmission Date: 20120608
  Serious: Yes (Other)
  Sender: FDA-Public Use
  Company Number: US-PFIZER INC-2012001588

PATIENT
  Sex: Male
  Weight: 74 kg

DRUGS (4)
  1. MULTI-VITAMINS [Concomitant]
     Dosage: UNK, 1X/DAY
  2. ACETYLSALICYLIC ACID [Concomitant]
     Dosage: UNK
  3. CADUET [Suspect]
     Indication: HYPERTENSION
     Dosage: 5/10 MG, 1X/DAY
     Route: 048
     Dates: start: 20090101
  4. CADUET [Suspect]
     Indication: BLOOD CHOLESTEROL INCREASED

REACTIONS (5)
  - RASH GENERALISED [None]
  - SKIN LESION [None]
  - DERMATITIS ALLERGIC [None]
  - PRURITUS GENERALISED [None]
  - GENERALISED ERYTHEMA [None]
